FAERS Safety Report 21496702 (Version 1)
Quarter: 2022Q4

REPORT INFORMATION
  Report Type: Spontaneous
  Country: FR (occurrence: FR)
  Receive Date: 20221022
  Receipt Date: 20221022
  Transmission Date: 20230113
  Serious: Yes (Other)
  Sender: FDA-Public Use
  Company Number: None

PATIENT
  Age: 50 Year
  Sex: Female

DRUGS (1)
  1. AMOXICILLIN [Suspect]
     Active Substance: AMOXICILLIN
     Indication: Bronchitis
     Dosage: UNKNOWN, DURATION : 1 DAY
     Dates: start: 20211029, end: 20211029

REACTIONS (2)
  - Type I hypersensitivity [Recovered/Resolved]
  - Skin test positive [Recovered/Resolved]

NARRATIVE: CASE EVENT DATE: 20211029
